FAERS Safety Report 19736146 (Version 2)
Quarter: 2021Q3

REPORT INFORMATION
  Report Type: Spontaneous
  Country: US (occurrence: US)
  Receive Date: 20210823
  Receipt Date: 20210924
  Transmission Date: 20211014
  Serious: No
  Sender: FDA-Public Use
  Company Number: US-ASTRAZENECA-2021A658865

PATIENT
  Sex: Male
  Weight: 90.7 kg

DRUGS (1)
  1. BYDUREON BCISE [Suspect]
     Active Substance: EXENATIDE
     Route: 058

REACTIONS (5)
  - Device issue [Unknown]
  - Product communication issue [Unknown]
  - Product dose omission issue [Unknown]
  - Injection site pain [Unknown]
  - Device leakage [Unknown]
